FAERS Safety Report 8722367 (Version 5)
Quarter: 2013Q4

REPORT INFORMATION
  Report Type: Spontaneous
  Country: US (occurrence: US)
  Receive Date: 20120814
  Receipt Date: 20131104
  Transmission Date: 20140711
  Serious: Yes (Disabling, Other)
  Sender: FDA-Public Use
  Company Number: US-009507513-1208USA004436

PATIENT
  Sex: Female
  Weight: 63.39 kg

DRUGS (10)
  1. FOSAMAX [Suspect]
     Dosage: UNK
     Route: 048
     Dates: start: 1998, end: 201005
  2. FOSAMAX PLUS D [Suspect]
     Indication: OSTEOPOROSIS
     Dosage: UNK
     Route: 048
     Dates: start: 1998, end: 201005
  3. FOSAMAX PLUS D [Suspect]
     Indication: OSTEOPENIA
  4. FOSAMAX [Suspect]
     Indication: OSTEOPOROSIS
     Dosage: 10 MG, QD
     Route: 048
     Dates: end: 201005
  5. FOSAMAX [Suspect]
     Dosage: 70 MG, QW
     Route: 048
     Dates: start: 2005, end: 201005
  6. VITAMINS (UNSPECIFIED) [Concomitant]
     Dosage: UNK
     Dates: start: 1987
  7. VITAMIN D (UNSPECIFIED) [Concomitant]
     Dosage: UNK
  8. CALCIUM (UNSPECIFIED) [Concomitant]
     Dosage: UNK
     Dates: start: 1987
  9. VITAMIN E [Concomitant]
     Dosage: UNK
     Dates: start: 1987
  10. ASCORBIC ACID [Concomitant]

REACTIONS (37)
  - Femur fracture [Unknown]
  - Intramedullary rod insertion [Unknown]
  - Bone density decreased [Unknown]
  - Bunion [Unknown]
  - Bunion [Unknown]
  - Foot deformity [Unknown]
  - Foot deformity [Unknown]
  - Vitamin D deficiency [Unknown]
  - Vitamin D deficiency [Unknown]
  - Joint injury [Unknown]
  - Osteoarthritis [Not Recovered/Not Resolved]
  - Foot fracture [Unknown]
  - Foot fracture [Unknown]
  - Urinary tract infection [Unknown]
  - Urinary tract infection [Unknown]
  - Pollakiuria [Unknown]
  - Bladder prolapse [Unknown]
  - Urethral caruncle [Unknown]
  - Eczema [Unknown]
  - Spinal osteoarthritis [Unknown]
  - Uterine prolapse [Unknown]
  - Urinary incontinence [Unknown]
  - Tooth disorder [Unknown]
  - Tooth disorder [Unknown]
  - Tooth disorder [Unknown]
  - Tooth disorder [Unknown]
  - Tooth fracture [Unknown]
  - Artificial crown procedure [Unknown]
  - Gingival inflammation [Unknown]
  - Dental caries [Unknown]
  - Artificial crown procedure [Unknown]
  - Tooth disorder [Unknown]
  - Temperature intolerance [Unknown]
  - Stress fracture [Unknown]
  - Neck pain [Not Recovered/Not Resolved]
  - Pain in extremity [Not Recovered/Not Resolved]
  - Asthenia [Unknown]
